FAERS Safety Report 4865664-7 (Version None)
Quarter: 2005Q4

REPORT INFORMATION
  Report Type: 
  Country: None (occurrence: None)
  Receive Date: 20051220
  Receipt Date: 20051130
  Transmission Date: 20060501
  Serious: Yes (Hospitalization)
  Sender: FDA-Public Use
  Company Number: US_0511123740

PATIENT
  Age: 78 Year
  Sex: Female

DRUGS (9)
  1. FORTEO [Suspect]
     Indication: OSTEOPOROSIS
     Dosage: 20 UG, DAILY (1/D)
     Dates: start: 20050621
  2. FORTEO PEN, 250MCG/ML (3ML) (FORTEO PEN 250MCG/ML (3ML)) [Concomitant]
  3. NORVASC      /DEN/ (AMLODIPINE BESILATE) [Concomitant]
  4. LEVOTHYROXINE SODIUM [Concomitant]
  5. PRAVACHOL [Concomitant]
  6. ASPIRIN [Concomitant]
  7. CALCIUM WITH VITAMIN D (CALCIUM PHOSPHATE, CALCIUM PHOSPHATE, CALCIUM [Concomitant]
  8. MULTIVITAMINS, PLAIN [Concomitant]
  9. CORDARONE                          /NET/(AMIODARONE HYDROCHLORIDE) [Concomitant]

REACTIONS (4)
  - BACK PAIN [None]
  - BEDRIDDEN [None]
  - COMPRESSION FRACTURE [None]
  - PHARMACEUTICAL PRODUCT COMPLAINT [None]
